FAERS Safety Report 6409206-3 (Version None)
Quarter: 2009Q4

REPORT INFORMATION
  Report Type: 
  Country: None (occurrence: None)
  Receive Date: 20091021
  Receipt Date: 20091015
  Transmission Date: 20100525
  Serious: Yes (Death, Life-Threatening, Hospitalization, Other)
  Sender: FDA-Public Use
  Company Number: PHHY2009DE44845

PATIENT
  Age: 76 Year
  Sex: Male
  Weight: 72 kg

DRUGS (18)
  1. SANDIMMUNE [Suspect]
     Indication: RENAL TRANSPLANT
     Dosage: 50 MG, BID
     Route: 048
     Dates: start: 20060501, end: 20090918
  2. SANDIMMUNE [Suspect]
     Dosage: 75MG AM AND 50 MG PM
     Route: 048
  3. SANDIMMUNE [Suspect]
     Route: 048
  4. CELLCEPT [Suspect]
     Indication: RENAL TRANSPLANT
     Dosage: 250 MG, BID
     Route: 048
     Dates: start: 20060401
  5. URBASON [Suspect]
     Indication: RENAL TRANSPLANT
     Dosage: UNK
     Route: 048
     Dates: start: 20090701, end: 20090918
  6. URBASON [Suspect]
     Dosage: 16 MG, UNK
     Dates: start: 20090805
  7. URBASON [Suspect]
     Dosage: 8 MG, UNK
     Dates: end: 20090814
  8. ASPIRIN [Concomitant]
     Indication: CORONARY ARTERY DISEASE
     Dosage: 100 MG, QD
     Route: 048
     Dates: start: 20060101, end: 20090819
  9. BISOPROLOL [Concomitant]
     Indication: HYPERTENSION
     Dosage: 5 MG, BID
     Route: 048
     Dates: start: 20060101, end: 20090819
  10. RAMIPRIL [Concomitant]
     Indication: HYPERTENSION
     Dosage: 5 MG, BID
     Route: 048
     Dates: start: 20060101, end: 20090819
  11. DIGITOXIN INJ [Concomitant]
     Indication: CARDIAC FAILURE
     Dosage: 0.07 MG, QD
     Route: 048
     Dates: start: 20090701, end: 20090819
  12. LEVOTHYROXINE SODIUM [Concomitant]
     Indication: HYPOTHYROIDISM
     Dosage: 125 UG, QD
     Route: 048
     Dates: end: 20090819
  13. MAGNESIOCARD [Concomitant]
     Indication: MAGNESIUM DEFICIENCY
     Dosage: 1 DF, BID
     Route: 048
     Dates: end: 20090819
  14. PANTOPRAZOLE SODIUM [Concomitant]
     Indication: PROPHYLAXIS AGAINST GASTROINTESTINAL ULCER
     Dosage: UNK
     Route: 048
     Dates: start: 20060101, end: 20090819
  15. SIMVAHEXAL [Concomitant]
     Indication: CORONARY ARTERY DISEASE
     Dosage: 40 MG, QD
     Route: 048
     Dates: start: 20090701, end: 20090819
  16. TAMSULOSIN [Concomitant]
     Dosage: 0.4 MG, QD
     Route: 048
     Dates: start: 20070101, end: 20090918
  17. TORSEMIDE [Concomitant]
     Indication: HYPERTENSION
     Dosage: 10 MG, QD
     Route: 048
     Dates: start: 20090701, end: 20090918
  18. ACETYLCYSTEINE [Concomitant]
     Dosage: 600 3 X D
     Dates: start: 20090813

REACTIONS (27)
  - ANEURYSM REPAIR [None]
  - BRADYCARDIA [None]
  - CARDIAC ARREST [None]
  - CARDIAC FAILURE [None]
  - CATHETERISATION CARDIAC [None]
  - CONCOMITANT DISEASE PROGRESSION [None]
  - COUGH [None]
  - CRITICAL ILLNESS POLYNEUROPATHY [None]
  - CULTURE URINE POSITIVE [None]
  - DYSPNOEA [None]
  - EMPHYSEMA [None]
  - ENDOTRACHEAL INTUBATION [None]
  - LEUKOCYTOSIS [None]
  - MUSCULAR WEAKNESS [None]
  - MYOPATHY [None]
  - PERCUTANEOUS CORONARY INTERVENTION [None]
  - PNEUMONIA [None]
  - RESPIRATORY DISORDER [None]
  - RESPIRATORY FAILURE [None]
  - RESPIRATORY THERAPY [None]
  - RESUSCITATION [None]
  - SEPSIS [None]
  - SKIN CANCER [None]
  - SKIN OPERATION [None]
  - SPUTUM DISCOLOURED [None]
  - TRACHEOSTOMY [None]
  - VASCULAR PSEUDOANEURYSM [None]
